FAERS Safety Report 9985743 (Version 1)
Quarter: 2014Q1

REPORT INFORMATION
  Report Type: Spontaneous
  Country: US (occurrence: US)
  Receive Date: 20140307
  Receipt Date: 20140307
  Transmission Date: 20141002
  Serious: Yes (Other)
  Sender: FDA-Public Use
  Company Number: US-BAYER-2014-032605

PATIENT
  Age: 38 Year
  Sex: Female

DRUGS (5)
  1. ACETYLSALICYLIC ACID (} 100 MG) [Suspect]
  2. ENOXAPARIN [Concomitant]
     Dosage: 1 MG/KG, BID
     Route: 058
  3. HYDROXYCHLOROQUINE [Concomitant]
     Dosage: DAILY DOSE 400 MG
  4. GAMMAGARD [Concomitant]
     Dosage: 0.5 MG/KG, UNK
  5. WARFARIN [Concomitant]

REACTIONS (3)
  - Foetal growth restriction [None]
  - Placental insufficiency [None]
  - Maternal exposure during pregnancy [None]
